FAERS Safety Report 18517109 (Version 2)
Quarter: 2020Q4

REPORT INFORMATION
  Report Type: Report from Study
  Country: BR (occurrence: BR)
  Receive Date: 20201118
  Receipt Date: 20201228
  Transmission Date: 20210114
  Serious: Yes (Other)
  Sender: FDA-Public Use
  Company Number: NVSC2020BR305580

PATIENT
  Age: 50 Year
  Sex: Female

DRUGS (4)
  1. GILENYA [Suspect]
     Active Substance: FINGOLIMOD HYDROCHLORIDE
     Indication: MULTIPLE SCLEROSIS
     Dosage: 1 DF, QD (1 TABLET)
     Route: 048
     Dates: start: 20181213, end: 20200814
  2. FRONTAL [Concomitant]
     Active Substance: ALPRAZOLAM
     Indication: SLEEP DISORDER
     Dosage: 1 DF, QHS
     Route: 048
  3. LEVOID [Concomitant]
     Active Substance: LEVOTHYROXINE
     Indication: HYPOTHYROIDISM
     Dosage: UNK
     Route: 048
  4. GILENYA [Suspect]
     Active Substance: FINGOLIMOD HYDROCHLORIDE
     Dosage: UNK
     Route: 065
     Dates: end: 202009

REACTIONS (6)
  - Lymphocyte count decreased [Recovered/Resolved]
  - Lymphocyte count abnormal [Recovered/Resolved]
  - Immunosuppression [Unknown]
  - Lymphopenia [Recovered/Resolved]
  - Lymphocyte count increased [Recovered/Resolved]
  - Lymphocyte count abnormal [Recovered/Resolved]

NARRATIVE: CASE EVENT DATE: 202001
